FAERS Safety Report 9275688 (Version 3)
Quarter: 2013Q2

REPORT INFORMATION
  Report Type: Report from Study
  Country: ID (occurrence: ID)
  Receive Date: 20130507
  Receipt Date: 20130521
  Transmission Date: 20140414
  Serious: Yes (Hospitalization)
  Sender: FDA-Public Use
  Company Number: ID-SANOFI-AVENTIS-2013SA044825

PATIENT
  Age: 27 Year
  Sex: Male

DRUGS (2)
  1. PRIMAQUINE PHOSPHATE [Suspect]
     Indication: PLASMODIUM VIVAX INFECTION
     Dosage: DOSE: 30 MG / DAY X 14
     Route: 065
     Dates: end: 20130417
  2. ARTENIMOL/PIPERAQUINE PHOSPHATE [Suspect]
     Indication: PLASMODIUM VIVAX INFECTION
     Dosage: DOSE: 3 TABLETS / DAY X 3 D
     Route: 065
     Dates: end: 20130417

REACTIONS (1)
  - Dengue fever [Recovered/Resolved]
